FAERS Safety Report 7925986 (Version 3)
Quarter: 2012Q4

REPORT INFORMATION
  Report Type: 
  Country: US (occurrence: US)
  Receive Date: 20110502
  Receipt Date: 20121009
  Transmission Date: 20130627
  Serious: No
  Sender: FDA-Public Use
  Company Number: US-ASTRAZENECA-2010SE52144

PATIENT
  Age: 73 Year
  Sex: Female

DRUGS (1)
  1. NEXIUM [Suspect]
     Route: 048

REACTIONS (5)
  - Inner ear disorder [Unknown]
  - Cardiac disorder [Unknown]
  - Sensory disturbance [Unknown]
  - Malaise [Unknown]
  - Intentional drug misuse [Unknown]
